FAERS Safety Report 9366829 (Version 2)
Quarter: 2013Q3

REPORT INFORMATION
  Report Type: Report from Study
  Country: CA (occurrence: CA)
  Receive Date: 20130625
  Receipt Date: 20130808
  Transmission Date: 20140515
  Serious: Yes (Other)
  Sender: FDA-Public Use
  Company Number: CA-BAYER-2013-072608

PATIENT
  Age: 78 Year
  Sex: Female

DRUGS (7)
  1. STIVARGA [Suspect]
     Indication: COLORECTAL CANCER
     Dosage: 160 MG, QD
     Route: 048
     Dates: start: 20130529
  2. MONOPRIL [Concomitant]
  3. PLAVIX [Concomitant]
  4. METFORMIN [Concomitant]
  5. GLYBURIDE [Concomitant]
  6. ATENOLOL [Concomitant]
  7. IRBESARTAN [Concomitant]

REACTIONS (5)
  - Blindness [None]
  - Fatigue [None]
  - Blood pressure decreased [None]
  - Diarrhoea [None]
  - Constipation [None]
